FAERS Safety Report 5581130-8 (Version None)
Quarter: 2007Q4

REPORT INFORMATION
  Report Type: 
  Country: None (occurrence: None)
  Receive Date: 20071228
  Receipt Date: 20071220
  Transmission Date: 20080405
  Serious: Yes (Other)
  Sender: FDA-Public Use
  Company Number: 2007336080

PATIENT
  Age: 35 Month
  Sex: Male
  Weight: 13.6079 kg

DRUGS (1)
  1. CHILDREN'S SUDAFED PE COLD + COUGH (DEXTROMETHORPHAN, PHENYLEPHRINE) [Suspect]
     Indication: COUGH
     Dosage: 1 TSP EVERY 6 HOURS, ORAL
     Route: 048
     Dates: start: 20071123, end: 20071126

REACTIONS (2)
  - CONVULSION [None]
  - MUSCLE SPASMS [None]
